FAERS Safety Report 7385339-2 (Version None)
Quarter: 2011Q1

REPORT INFORMATION
  Report Type: 
  Country: None (occurrence: None)
  Receive Date: 20110330
  Receipt Date: 20101101
  Transmission Date: 20110831
  Serious: No
  Sender: FDA-Public Use
  Company Number: US-MYLANLABS-2010S1017230

PATIENT
  Age: 81 Year
  Sex: Male
  Weight: 82.1 kg

DRUGS (13)
  1. MELOXICAM [Concomitant]
     Indication: BACK DISORDER
  2. ASPIRIN [Concomitant]
     Indication: STENT PLACEMENT
  3. ASTELIN [Concomitant]
     Indication: CHRONIC SINUSITIS
  4. PANTOPRAZOLE [Concomitant]
     Indication: HIATUS HERNIA
  5. FLOMAX [Concomitant]
     Indication: PROSTATE INFECTION
  6. GABAPENTIN [Concomitant]
     Indication: BACK DISORDER
  7. METAXALONE [Concomitant]
     Indication: BACK DISORDER
  8. PLAVIX [Concomitant]
     Indication: STENT PLACEMENT
  9. DIOVAN [Concomitant]
  10. EMSAM [Suspect]
     Indication: DEPRESSION
     Dosage: QD
     Route: 062
     Dates: start: 20100813, end: 20100919
  11. FLUTICASON [Concomitant]
     Indication: CHRONIC SINUSITIS
  12. RANITIDINE [Concomitant]
     Indication: HIATUS HERNIA
  13. CLONAZEPAM [Concomitant]
     Indication: BACK DISORDER

REACTIONS (5)
  - HYPERSENSITIVITY [None]
  - ADVERSE EVENT [None]
  - APPLICATION SITE RASH [None]
  - APPLICATION SITE ERYTHEMA [None]
  - APPLICATION SITE IRRITATION [None]
